FAERS Safety Report 5728430-6 (Version None)
Quarter: 2008Q2

REPORT INFORMATION
  Report Type: 
  Country: None (occurrence: None)
  Receive Date: 20080506
  Receipt Date: 20080506
  Transmission Date: 20081010
  Serious: Yes (Life-Threatening)
  Sender: FDA-Public Use
  Company Number: None

PATIENT
  Age: 75 Year
  Sex: Male
  Weight: 94.57 kg

DRUGS (1)
  1. HEPARIN SODIUM [Suspect]
     Indication: VENA CAVA THROMBOSIS
     Dosage: 7000 UNIT ONCE IV BOLUS
     Route: 040
     Dates: start: 20080503, end: 20080503

REACTIONS (7)
  - BLOOD PRESSURE SYSTOLIC INCREASED [None]
  - DRUG HYPERSENSITIVITY [None]
  - DYSPNOEA [None]
  - FEELING HOT [None]
  - HEART RATE INCREASED [None]
  - OXYGEN SATURATION DECREASED [None]
  - RESPIRATORY RATE INCREASED [None]
